FAERS Safety Report 12179068 (Version 2)
Quarter: 2016Q2

REPORT INFORMATION
  Report Type: Spontaneous
  Country: US (occurrence: US)
  Receive Date: 20160314
  Receipt Date: 20160607
  Transmission Date: 20160815
  Serious: No
  Sender: FDA-Public Use
  Company Number: US-SA-2016SA038287

PATIENT
  Age: 68 Year
  Sex: Female
  Weight: 210 kg

DRUGS (9)
  1. METOPROLOL. [Concomitant]
     Active Substance: METOPROLOL
  2. TAMOXIFEN [Concomitant]
     Active Substance: TAMOXIFEN
  3. SOLOSTAR [Concomitant]
     Active Substance: DEVICE
     Dates: start: 2009
  4. TYLENOL [Concomitant]
     Active Substance: ACETAMINOPHEN
  5. LOSARTAN. [Concomitant]
     Active Substance: LOSARTAN
  6. LANTUS SOLOSTAR [Concomitant]
     Active Substance: INSULIN GLARGINE
     Dates: start: 2009
  7. SOLOSTAR [Concomitant]
     Active Substance: DEVICE
     Indication: TYPE 2 DIABETES MELLITUS
     Dates: start: 201511
  8. FUROSEMIDE. [Concomitant]
     Active Substance: FUROSEMIDE
  9. TOUJEO [Suspect]
     Active Substance: INSULIN GLARGINE
     Indication: TYPE 2 DIABETES MELLITUS
     Dosage: DOSE:45 UNIT(S)
     Route: 065
     Dates: start: 20151115, end: 20160216

REACTIONS (5)
  - Blood glucose fluctuation [Unknown]
  - Pruritus [Unknown]
  - Blood glucose increased [Recovered/Resolved]
  - Drug ineffective [Unknown]
  - Rash [Recovered/Resolved]

NARRATIVE: CASE EVENT DATE: 2015
